FAERS Safety Report 8158407-5 (Version None)
Quarter: 2012Q1

REPORT INFORMATION
  Report Type: 
  Country: None (occurrence: None)
  Receive Date: 20120223
  Receipt Date: 20120215
  Transmission Date: 20120608
  Serious: Yes (Hospitalization, Other)
  Sender: FDA-Public Use
  Company Number: US-BAYER-201013375NA

PATIENT
  Age: 35 Year
  Sex: Female
  Weight: 70 kg

DRUGS (10)
  1. TRIVORA-21 [Concomitant]
     Indication: ORAL CONTRACEPTION
     Dosage: RX RECORDS FROM 09-JAN-2007 TO 30-JUL-2007
     Dates: start: 20070101, end: 20070615
  2. XANAX [Concomitant]
     Dosage: 2.5 MG, TID
  3. YAZ [Suspect]
     Indication: CONTRACEPTION
     Dosage: RX RECORDS ON 19-NOV-2007
     Route: 048
     Dates: start: 20070801, end: 20071115
  4. ASPIRIN [Concomitant]
     Dosage: GRAINS 5 DAILY
  5. HERBAL PREPARATION [Concomitant]
  6. ORTHO CYCLEN-28 [Concomitant]
     Dosage: UNK
  7. CNP MULTIPACK [Concomitant]
  8. IBUPROFEN (ADVIL) [Concomitant]
     Dosage: SINCE HIGH SCHOOL AS NEEDED
  9. MULTIVITAMIN WITH MINERALS [Concomitant]
  10. AMBIEN [Concomitant]
     Dosage: AS NEEDED

REACTIONS (9)
  - NEUROMYOPATHY [None]
  - UNEVALUABLE EVENT [None]
  - MYOCLONIC EPILEPSY [None]
  - COGNITIVE DISORDER [None]
  - MYOCLONUS [None]
  - CEREBROVASCULAR ACCIDENT [None]
  - BALANCE DISORDER [None]
  - ANXIETY [None]
  - APHASIA [None]
